FAERS Safety Report 7428848-X (Version None)
Quarter: 2011Q2

REPORT INFORMATION
  Report Type: 
  Country: None (occurrence: None)
  Receive Date: 20110421
  Receipt Date: 20110409
  Transmission Date: 20111010
  Serious: Yes (Other)
  Sender: FDA-Public Use
  Company Number: PHHY2011KR30365

PATIENT

DRUGS (1)
  1. EXELON [Suspect]
     Route: 062

REACTIONS (2)
  - CONVULSION [None]
  - CHEST DISCOMFORT [None]
